FAERS Safety Report 8172918 (Version 3)
Quarter: 2012Q4

REPORT INFORMATION
  Report Type: Report from Study
  Country: JP (occurrence: JP)
  Receive Date: 20111007
  Receipt Date: 20121026
  Transmission Date: 20130627
  Serious: Yes (Hospitalization, Other)
  Sender: FDA-Public Use
  Company Number: PHHY2011JP62642

PATIENT
  Age: 58 Year
  Sex: Male
  Weight: 59 kg

DRUGS (64)
  1. LEPONEX / CLOZARIL [Suspect]
     Indication: SCHIZOPHRENIA
     Dosage: 12.5 mg, UNK
     Route: 048
     Dates: start: 20110201, end: 20110201
  2. LEPONEX / CLOZARIL [Suspect]
     Dosage: 25 mg, UNK
     Route: 048
     Dates: start: 20110202, end: 20110204
  3. LEPONEX / CLOZARIL [Suspect]
     Dosage: 50 mg, UNK
     Route: 048
     Dates: start: 20110205, end: 20110208
  4. LEPONEX / CLOZARIL [Suspect]
     Dosage: 75 mg, UNK
     Route: 048
     Dates: start: 20110209, end: 20110215
  5. LEPONEX / CLOZARIL [Suspect]
     Dosage: 100 mg, UNK
     Route: 048
     Dates: start: 20110331, end: 20110331
  6. LEPONEX / CLOZARIL [Suspect]
     Dosage: 12.5 mg, UNK
     Route: 048
     Dates: start: 20110216, end: 20110216
  7. LEPONEX / CLOZARIL [Suspect]
     Dosage: 25 mg, UNK
     Route: 048
     Dates: start: 20110223, end: 20110223
  8. LEPONEX / CLOZARIL [Suspect]
     Dosage: 50 mg, UNK
     Route: 048
     Dates: start: 20110224, end: 20110226
  9. LEPONEX / CLOZARIL [Suspect]
     Dosage: 75 mg, UNK
     Route: 048
     Dates: start: 20110227, end: 20110301
  10. LEPONEX / CLOZARIL [Suspect]
     Dosage: 100 mg, UNK
     Route: 048
     Dates: start: 20110302, end: 20110308
  11. LEPONEX / CLOZARIL [Suspect]
     Dosage: 125 mg, UNK
     Route: 048
     Dates: start: 20110309, end: 20110322
  12. LEPONEX / CLOZARIL [Suspect]
     Dosage: 150 mg, UNK
     Route: 048
     Dates: start: 20110323, end: 20110329
  13. LEPONEX / CLOZARIL [Suspect]
     Dosage: 175 mg, UNK
     Route: 048
     Dates: start: 20110330, end: 20110406
  14. LEPONEX / CLOZARIL [Suspect]
     Dosage: 200 mg, UNK
     Route: 048
     Dates: start: 20110407, end: 20110410
  15. LEPONEX / CLOZARIL [Suspect]
     Dosage: 225 mg, UNK
     Route: 048
     Dates: start: 20110411, end: 20110414
  16. LEPONEX / CLOZARIL [Suspect]
     Dosage: 250 mg, UNK
     Route: 048
     Dates: start: 20110415, end: 20110418
  17. LEPONEX / CLOZARIL [Suspect]
     Dosage: 275 mg, UNK
     Route: 048
     Dates: start: 20110419, end: 20110422
  18. LEPONEX / CLOZARIL [Suspect]
     Dosage: 300 mg, UNK
     Route: 048
     Dates: start: 20110423, end: 20110426
  19. LEPONEX / CLOZARIL [Suspect]
     Dosage: 325 mg, UNK
     Route: 048
     Dates: start: 20110427, end: 20110502
  20. LEPONEX / CLOZARIL [Suspect]
     Dosage: 350 mg, UNK
     Route: 048
     Dates: start: 20110503, end: 20110518
  21. LEPONEX / CLOZARIL [Suspect]
     Dosage: 250 mg, UNK
     Route: 048
     Dates: start: 20110519, end: 20110519
  22. LEPONEX / CLOZARIL [Suspect]
     Dosage: 300 mg, UNK
     Route: 048
     Dates: start: 20110520, end: 20110525
  23. LEPONEX / CLOZARIL [Suspect]
     Dosage: 325 mg, UNK
     Route: 048
     Dates: start: 20110526, end: 20110601
  24. LEPONEX / CLOZARIL [Suspect]
     Dosage: 350 mg, UNK
     Route: 048
     Dates: start: 20110602, end: 20110605
  25. LEPONEX / CLOZARIL [Suspect]
     Dosage: 375 mg, UNK
     Route: 048
     Dates: start: 20110606, end: 20110609
  26. LEPONEX / CLOZARIL [Suspect]
     Dosage: 400 mg, UNK
     Route: 048
     Dates: start: 20110610, end: 20110613
  27. LEPONEX / CLOZARIL [Suspect]
     Dosage: 425 mg, UNK
     Route: 048
     Dates: start: 20110614, end: 20110617
  28. LEPONEX / CLOZARIL [Suspect]
     Dosage: 450 mg, UNK
     Route: 048
     Dates: start: 20110618, end: 20110621
  29. LEPONEX / CLOZARIL [Suspect]
     Dosage: 475 mg, UNK
     Route: 048
     Dates: start: 20110622, end: 20110625
  30. LEPONEX / CLOZARIL [Suspect]
     Dosage: 500 mg, UNK
     Route: 048
     Dates: start: 20110626, end: 20110629
  31. LEPONEX / CLOZARIL [Suspect]
     Route: 048
     Dates: start: 20110630, end: 20110705
  32. TEGRETOL [Concomitant]
     Indication: SCHIZOPHRENIA, PARANOID TYPE
     Dosage: 200 mg, UNK
     Route: 048
     Dates: start: 20110613
  33. FLUNITRAZEPAM [Concomitant]
     Indication: SCHIZOPHRENIA, PARANOID TYPE
     Dosage: 1 mg, UNK
  34. FLUNITRAZEPAM [Concomitant]
     Dosage: 4 mg, UNK
  35. FLUNITRAZEPAM [Concomitant]
     Dosage: 4 mg, UNK
  36. RONFLEMAN [Concomitant]
     Indication: SCHIZOPHRENIA, PARANOID TYPE
     Dosage: 0.25 mg, UNK
     Dates: end: 20110510
  37. MUCOSTA [Concomitant]
     Dosage: 300 mg, UNK
     Route: 048
  38. MUCOSTA [Concomitant]
     Dosage: 300 mg, UNK
     Route: 048
  39. TAKEPRON [Concomitant]
     Dosage: 15 mg, UNK
     Route: 048
     Dates: end: 20110610
  40. LIMAS [Concomitant]
     Indication: SCHIZOPHRENIA, PARANOID TYPE
     Route: 048
     Dates: start: 20110218, end: 20110520
  41. FEROTYM [Concomitant]
     Dosage: 150 mg, UNK
     Route: 048
     Dates: start: 20110430
  42. FEROTYM [Concomitant]
     Dosage: 150 mg, UNK
     Route: 048
  43. RIVOTRIL [Concomitant]
     Indication: SCHIZOPHRENIA, PARANOID TYPE
     Dosage: 1.5 mg, UNK
     Dates: end: 20110211
  44. LORAZEPAM [Concomitant]
     Indication: SCHIZOPHRENIA, PARANOID TYPE
     Dosage: 0.5 mg, UNK
     Dates: end: 20110708
  45. LORAZEPAM [Concomitant]
     Dosage: 0.5 mg, UNK
  46. LORAZEPAM [Concomitant]
     Dosage: 0.5 mg, UNK
  47. LORAZEPAM [Concomitant]
     Dosage: 0.5 mg, UNK
     Dates: end: 20110708
  48. CALONAL [Concomitant]
     Dosage: 200 mg, UNK
     Route: 048
     Dates: start: 20110217, end: 20110223
  49. LOXOPROFEN [Concomitant]
     Dosage: 60 mg, UNK
     Route: 048
     Dates: start: 20110218, end: 20110224
  50. DORAL [Concomitant]
     Indication: SCHIZOPHRENIA, PARANOID TYPE
     Dosage: 15 mg, UNK
     Route: 048
     Dates: start: 20110524
  51. DORAL [Concomitant]
     Dosage: 15 mg, UNK
     Route: 048
  52. DORAL [Concomitant]
     Dosage: 15 mg, UNK
     Route: 048
     Dates: end: 20110502
  53. ZITHROMAC [Concomitant]
     Dosage: 2000 mg, UNK
     Route: 048
     Dates: start: 20110228, end: 20110228
  54. BIASAN [Concomitant]
     Dosage: 1100 mg, UNK
     Route: 048
     Dates: start: 20110328
  55. BIASAN [Concomitant]
     Dosage: 1100 mg, UNK
     Route: 048
  56. BIASAN [Concomitant]
     Dosage: UNK
     Route: 048
     Dates: end: 20110502
  57. CELESTAMINE                        /00252801/ [Concomitant]
     Route: 048
     Dates: start: 20110507
  58. GLYCYRON [Concomitant]
     Dosage: 4 DF, UNK
     Dates: start: 20110714
  59. LEUCON [Concomitant]
     Dosage: 60 mg, UNK
     Dates: start: 20110604
  60. LEUCON [Concomitant]
     Dosage: 60 mg, UNK
  61. VENA [Concomitant]
     Dosage: 150 mg, UNK
     Route: 048
     Dates: start: 20110613, end: 20110729
  62. MARZULENE S [Concomitant]
     Dosage: 3 g, UNK
     Route: 048
  63. FLOMOX [Concomitant]
     Dosage: 300 mg, UNK
     Route: 048
     Dates: start: 20110614
  64. FLOMOX [Concomitant]
     Dosage: 300 mg, UNK
     Route: 048
     Dates: end: 20110620

REACTIONS (6)
  - Hepatic function abnormal [Not Recovered/Not Resolved]
  - Alanine aminotransferase increased [Recovering/Resolving]
  - Aspartate aminotransferase increased [Recovered/Resolved]
  - Enterocolitis [Recovered/Resolved]
  - Rectal prolapse [Recovering/Resolving]
  - Parkinsonism [Recovering/Resolving]
